FAERS Safety Report 8553091-0 (Version None)
Quarter: 2012Q3

REPORT INFORMATION
  Report Type: 
  Country: None (occurrence: None)
  Receive Date: 20120731
  Receipt Date: 20120720
  Transmission Date: 20120928
  Serious: Yes (Hospitalization)
  Sender: FDA-Public Use
  Company Number: DE-SANOFI-AVENTIS-2012SA052543

PATIENT
  Age: 63 Year
  Sex: Female

DRUGS (6)
  1. CLOPIDOGREL BISULFATE [Suspect]
     Indication: THROMBOSIS PROPHYLAXIS
     Route: 065
     Dates: start: 20111201
  2. RAMIPRIL [Concomitant]
  3. BETA BLOCKING AGENTS [Concomitant]
  4. SIMVASTATIN [Concomitant]
  5. ASPIRIN [Concomitant]
  6. ALISKIREN [Concomitant]

REACTIONS (1)
  - INFLUENZA LIKE ILLNESS [None]
